FAERS Safety Report 14254900 (Version 5)
Quarter: 2018Q4

REPORT INFORMATION
  Report Type: Spontaneous
  Country: ES (occurrence: ES)
  Receive Date: 20171206
  Receipt Date: 20181217
  Transmission Date: 20190204
  Serious: Yes (Life-Threatening, Hospitalization, Other)
  Sender: FDA-Public Use
  Company Number: ES-AUROBINDO-AUR-APL-2017-44494

PATIENT
  Age: 78 Year
  Sex: Female

DRUGS (12)
  1. METHYLPREDNISOLONE. [Concomitant]
     Active Substance: METHYLPREDNISOLONE
     Indication: ENCEPHALITIS AUTOIMMUNE
     Dosage: 500 MILLIGRAM
     Route: 042
  2. LEVOFLOXACIN. [Suspect]
     Active Substance: LEVOFLOXACIN
     Indication: MENINGOENCEPHALITIS HERPETIC
     Dosage: 500 MILLIGRAM, ONCE A DAY, NEXT 14 DAY
     Route: 042
  3. LEVOFLOXACIN. [Suspect]
     Active Substance: LEVOFLOXACIN
     Dosage: 500 MILLIGRAM, TWO TIMES A DAY, 1ST DAY
     Route: 042
  4. PREDNISONE. [Concomitant]
     Active Substance: PREDNISONE
     Indication: ENCEPHALITIS AUTOIMMUNE
     Dosage: 60 MILLIGRAM, ONCE A DAY
     Route: 048
  5. METHYLPREDNISOLONE. [Concomitant]
     Active Substance: METHYLPREDNISOLONE
     Dosage: 500 MILLIGRAM, ONCE A DAY (QD)
     Route: 042
  6. ACICLOVIR [Suspect]
     Active Substance: ACYCLOVIR
     Indication: ENCEPHALITIS AUTOIMMUNE
     Dosage: 30 MILLIGRAM/KILOGRAM, ONCE A DAY
     Route: 042
  7. ACICLOVIR [Suspect]
     Active Substance: ACYCLOVIR
     Dosage: 10 MILLIGRAM/KILOGRAM, 3 TIMES A DAY (Q8H)
     Route: 042
  8. INFLUENZA VACCINE POLYVALENT [Suspect]
     Active Substance: INFLUENZA VIRUS VACCINE
     Indication: PROPHYLAXIS
     Dosage: UNK
     Route: 065
  9. IMMUNOGLOBULIN                     /00025201/ [Concomitant]
     Active Substance: HUMAN IMMUNOGLOBULIN G
     Indication: ENCEPHALITIS AUTOIMMUNE
     Dosage: UNK
     Route: 065
  10. SERTRALINE [Concomitant]
     Active Substance: SERTRALINE HYDROCHLORIDE
     Indication: DEPRESSION
     Dosage: UNK
     Route: 048
  11. METHYLPREDNISOLONE. [Concomitant]
     Active Substance: METHYLPREDNISOLONE
     Dosage: 30 GRAM, ONCE A DAY (QD)
     Route: 042
  12. ENOXAPARIN [Concomitant]
     Active Substance: ENOXAPARIN
     Indication: PRODUCT USED FOR UNKNOWN INDICATION
     Dosage: 0.91 MILLIGRAM/KILOGRAM, ONCE A DAY
     Route: 058

REACTIONS (26)
  - Pleocytosis [Recovered/Resolved]
  - Muscle haemorrhage [Recovered/Resolved]
  - Aphasia [Recovered/Resolved]
  - Haemorrhagic disorder [Recovered/Resolved]
  - Erythema [Recovered/Resolved]
  - Gait disturbance [Recovered/Resolved]
  - Psychotic symptom [Recovered/Resolved]
  - Nervous system disorder [Recovered/Resolved]
  - Coagulopathy [Recovered/Resolved]
  - Peripheral swelling [Recovered/Resolved]
  - Movement disorder [Recovered/Resolved]
  - Partial seizures [Recovered/Resolved]
  - Pyrexia [Recovered/Resolved]
  - Encephalitis autoimmune [Recovered/Resolved]
  - Pancytopenia [Recovered/Resolved]
  - Meningitis aseptic [Recovered/Resolved]
  - Condition aggravated [Recovered/Resolved]
  - Factor XIII deficiency [Recovered/Resolved]
  - Anaemia [Recovered/Resolved]
  - Depression [Recovered/Resolved]
  - Speech disorder [Recovered/Resolved]
  - Haemoglobin decreased [Recovered/Resolved]
  - Herpes simplex encephalitis [Recovered/Resolved]
  - Disorientation [Recovered/Resolved]
  - Hemiparesis [Recovered/Resolved]
  - Factor XIII Inhibition [Recovered/Resolved]
